FAERS Safety Report 17092142 (Version 1)
Quarter: 2019Q4

REPORT INFORMATION
  Report Type: Spontaneous
  Country: US (occurrence: US)
  Receive Date: 20191129
  Receipt Date: 20191129
  Transmission Date: 20200122
  Serious: No
  Sender: FDA-Public Use
  Company Number: US-UCBSA-2018012510

PATIENT
  Sex: Male

DRUGS (1)
  1. VIMPAT [Suspect]
     Active Substance: LACOSAMIDE
     Indication: EPILEPSY
     Dosage: 50 AND SPLITTING 25 IN MORNING AND AT NIGHT
     Dates: start: 20150101

REACTIONS (2)
  - Wrong technique in product usage process [Unknown]
  - Seizure [Unknown]
